FAERS Safety Report 25494257 (Version 1)
Quarter: 2025Q2

REPORT INFORMATION
  Report Type: Spontaneous
  Country: FR (occurrence: FR)
  Receive Date: 20250630
  Receipt Date: 20250630
  Transmission Date: 20250717
  Serious: Yes (Hospitalization, Disabling, Other)
  Sender: RANBAXY
  Company Number: FR-EMA-DD-20240829-7482691-113808

PATIENT
  Age: 60 Year
  Sex: Female

DRUGS (37)
  1. ACETAMINOPHEN [Suspect]
     Active Substance: ACETAMINOPHEN
     Indication: Product used for unknown indication
     Route: 065
  2. PREGABALIN [Suspect]
     Active Substance: PREGABALIN
     Indication: Product used for unknown indication
     Route: 048
  3. PREGABALIN [Suspect]
     Active Substance: PREGABALIN
     Dosage: 1 DOSAGE FORM, BID
     Route: 065
  4. CETIRIZINE [Suspect]
     Active Substance: CETIRIZINE HYDROCHLORIDE
     Indication: Product used for unknown indication
     Route: 065
  5. SMECTA [Suspect]
     Active Substance: MONTMORILLONITE
     Indication: Product used for unknown indication
     Route: 065
  6. PROGESTERONE [Suspect]
     Active Substance: PROGESTERONE
     Indication: Product used for unknown indication
     Route: 065
  7. MIRTAZAPINE [Suspect]
     Active Substance: MIRTAZAPINE
     Indication: Product used for unknown indication
     Route: 065
  8. METEOSPASMYL (ALVERINE CITRATE\DIMETHICONE) [Suspect]
     Active Substance: ALVERINE CITRATE\DIMETHICONE
     Indication: Product used for unknown indication
     Route: 065
  9. METEOSPASMYL (ALVERINE CITRATE\DIMETHICONE) [Suspect]
     Active Substance: ALVERINE CITRATE\DIMETHICONE
     Route: 065
  10. LOCOID [Suspect]
     Active Substance: HYDROCORTISONE BUTYRATE
     Indication: Product used for unknown indication
     Route: 065
  11. CHLORMADINONE [Suspect]
     Active Substance: CHLORMADINONE
     Indication: Product used for unknown indication
     Route: 065
  12. BROMAZEPAM [Suspect]
     Active Substance: BROMAZEPAM
     Indication: Product used for unknown indication
     Dosage: 6 MG (6 MG TABS DOUBLE-SCORED 1 TBLT/30) 1/4 TABLET MORNING, NOON AND EVENING, FOR 3 MONTHS.
     Route: 048
  13. BROMAZEPAM [Suspect]
     Active Substance: BROMAZEPAM
     Dosage: 0.25 DOSAGE FORM, TID
     Route: 048
  14. CETIRIZINE HYDROCHLORIDE [Suspect]
     Active Substance: CETIRIZINE HYDROCHLORIDE
     Indication: Product used for unknown indication
     Dosage: 1 DF, QD/ONCE IN THE EVENING
     Route: 065
  15. DAFALGAN [Suspect]
     Active Substance: ACETAMINOPHEN
     Indication: Product used for unknown indication
     Dosage: 4 DF, QD
     Route: 048
  16. GLYCERIN\MINERAL OIL\PETROLATUM [Suspect]
     Active Substance: GLYCERIN\MINERAL OIL\PETROLATUM
     Indication: Product used for unknown indication
     Route: 065
  17. IBUPROFEN [Suspect]
     Active Substance: IBUPROFEN
     Indication: Product used for unknown indication
     Dosage: MAKE 3 APPLICATIONS PER DAY
     Route: 065
  18. NOMEGESTROL ACETATE [Suspect]
     Active Substance: NOMEGESTROL ACETATE
     Indication: Ovarian cyst
     Dosage: 1 DF, QD
     Route: 065
     Dates: start: 20150403
  19. NOMEGESTROL ACETATE [Suspect]
     Active Substance: NOMEGESTROL ACETATE
     Indication: Menstruation irregular
     Dosage: 1 DF, QD
     Route: 065
     Dates: start: 20100621
  20. NOMEGESTROL ACETATE [Suspect]
     Active Substance: NOMEGESTROL ACETATE
     Dosage: 1 DF, QD
     Route: 065
     Dates: start: 20170921
  21. NOMEGESTROL ACETATE [Suspect]
     Active Substance: NOMEGESTROL ACETATE
     Dosage: 1 DF, QD
     Route: 065
     Dates: start: 20140505
  22. NOMEGESTROL ACETATE [Suspect]
     Active Substance: NOMEGESTROL ACETATE
     Dosage: 1 DF, QD
     Route: 065
     Dates: start: 20181106, end: 20190117
  23. NOMEGESTROL ACETATE [Suspect]
     Active Substance: NOMEGESTROL ACETATE
     Dosage: 1 DF, QD
     Route: 065
     Dates: start: 20170613
  24. NOMEGESTROL ACETATE [Suspect]
     Active Substance: NOMEGESTROL ACETATE
     Dosage: 1 DF, QD
     Route: 065
     Dates: start: 20180329
  25. NOMEGESTROL ACETATE [Suspect]
     Active Substance: NOMEGESTROL ACETATE
     Dosage: 1 DF, QD
     Route: 065
     Dates: start: 20130517
  26. NOMEGESTROL ACETATE [Suspect]
     Active Substance: NOMEGESTROL ACETATE
     Dosage: 1 DF, QD
     Route: 065
     Dates: start: 20170307
  27. NOMEGESTROL ACETATE [Suspect]
     Active Substance: NOMEGESTROL ACETATE
     Dosage: 1 DF, QD
     Route: 065
     Dates: start: 20171211
  28. NOMEGESTROL ACETATE [Suspect]
     Active Substance: NOMEGESTROL ACETATE
     Dosage: 1 DF, QD
     Route: 065
     Dates: start: 20120514
  29. CHLORMADINONE ACETATE [Suspect]
     Active Substance: CHLORMADINONE ACETATE
     Indication: Ovarian cyst
     Dosage: 1 DF , QD FOR 21 DAYS/MERCK , ONE TABLET PER DAY DURING 21 DAYS AND 7 DAYS OFF BY MONTHS
     Route: 065
     Dates: start: 20190806
  30. CHLORMADINONE ACETATE [Suspect]
     Active Substance: CHLORMADINONE ACETATE
     Indication: Menstruation irregular
     Dosage: 1 DF , QD FOR 21 DAYS
     Route: 065
     Dates: start: 20190715
  31. CHLORMADINONE ACETATE [Suspect]
     Active Substance: CHLORMADINONE ACETATE
     Dosage: 1 DF , QD FOR 21 DAYS
     Route: 065
     Dates: start: 20190117
  32. CHLORMADINONE ACETATE [Suspect]
     Active Substance: CHLORMADINONE ACETATE
     Dosage: 1 DF , QD FOR 21 DAYS/ONE TABLET PER DAY DURING 21 DAYS AND 7 DAYS OFF BY MONTHS
     Route: 065
     Dates: start: 20100317, end: 20100621
  33. CHLORMADINONE ACETATE [Suspect]
     Active Substance: CHLORMADINONE ACETATE
     Dosage: ONE TABLET PER DAY DURING 21 DAYS AND 7 DAYS OFF BY MONTHS
     Route: 065
  34. LYRICA [Suspect]
     Active Substance: PREGABALIN
     Indication: Product used for unknown indication
     Dosage: 1 DF, BID
     Route: 048
  35. MIRTAZAPINE [Suspect]
     Active Substance: MIRTAZAPINE
     Indication: Product used for unknown indication
     Dosage: 30 MILLIGRAM, DAILY,ARROW GENERIQUES 15 MG FI/30, (2 TABLETS IN THE EVENING FOR 3 MONTHS)
     Route: 048
  36. TRAMADOL HYDROCHLORIDE [Suspect]
     Active Substance: TRAMADOL HYDROCHLORIDE
     Indication: Complex regional pain syndrome
     Dosage: 150 MILLIGRAM, DAILY, 1 DF, QD
     Route: 048
  37. TIAPRIDE HYDROCHLORIDE [Suspect]
     Active Substance: TIAPRIDE HYDROCHLORIDE
     Indication: Product used for unknown indication
     Dosage: 1 DF, QD/ONCE IN THE EVENING
     Route: 048

REACTIONS (7)
  - Muscular weakness [Not Recovered/Not Resolved]
  - Pain in extremity [Not Recovered/Not Resolved]
  - Dizziness [Not Recovered/Not Resolved]
  - Meningioma [Unknown]
  - Epistaxis [Not Recovered/Not Resolved]
  - Headache [Not Recovered/Not Resolved]
  - Asthenia [Not Recovered/Not Resolved]

NARRATIVE: CASE EVENT DATE: 20211021
